FAERS Safety Report 4885252-6 (Version None)
Quarter: 2005Q4

REPORT INFORMATION
  Report Type: 
  Country: None (occurrence: None)
  Receive Date: 20051220
  Receipt Date: 20051005
  Transmission Date: 20060501
  Serious: Yes (Other)
  Sender: FDA-Public Use
  Company Number: US152683

PATIENT
  Age: 65 Year
  Sex: Male
  Weight: 70 kg

DRUGS (2)
  1. ENBREL [Suspect]
     Indication: PSORIASIS
     Dosage: 50 MG, 2 IN 1 WEEKS, SC;  25 MG, 2 IN 1 WEEKS, SC
     Route: 058
     Dates: start: 20041209, end: 20050201
  2. ENBREL [Suspect]
     Indication: PSORIASIS
     Dosage: 50 MG, 2 IN 1 WEEKS, SC;  25 MG, 2 IN 1 WEEKS, SC
     Route: 058
     Dates: start: 20050201, end: 20050515

REACTIONS (1)
  - SQUAMOUS CELL CARCINOMA [None]
